FAERS Safety Report 6098911-7 (Version None)
Quarter: 2009Q1

REPORT INFORMATION
  Report Type: 
  Country: None (occurrence: None)
  Receive Date: 20090302
  Receipt Date: 20090226
  Transmission Date: 20090719
  Serious: Yes (Death, Hospitalization)
  Sender: FDA-Public Use
  Company Number: CH-ASTRAZENECA-2009PK00692

PATIENT
  Age: 89 Year
  Sex: Male

DRUGS (6)
  1. BELOC ZOK [Suspect]
     Indication: MYOCARDIAL ISCHAEMIA
     Route: 048
     Dates: start: 20081011, end: 20081017
  2. TORSEMIDE [Concomitant]
     Route: 048
  3. SORTIS [Concomitant]
     Route: 048
  4. REMERON [Concomitant]
     Route: 048
  5. PANTOZOL [Concomitant]
     Route: 048
  6. MARCUMAR [Concomitant]
     Route: 048

REACTIONS (3)
  - BRADYARRHYTHMIA [None]
  - CEREBROVASCULAR ACCIDENT [None]
  - SYNCOPE [None]
